FAERS Safety Report 7358757-6 (Version None)
Quarter: 2011Q1

REPORT INFORMATION
  Report Type: 
  Country: None (occurrence: None)
  Receive Date: 20110317
  Receipt Date: 20110311
  Transmission Date: 20110831
  Serious: Yes (Hospitalization)
  Sender: FDA-Public Use
  Company Number: A0912924A

PATIENT
  Age: 58 Year
  Sex: Female
  Weight: 79.1 kg

DRUGS (8)
  1. LAPATINIB [Suspect]
     Indication: BREAST CANCER
     Dosage: 750MG PER DAY
     Route: 048
     Dates: start: 20101230
  2. NEUPOGEN [Concomitant]
  3. TRASTUZUMAB [Suspect]
     Indication: BREAST CANCER
     Route: 042
     Dates: start: 20101230
  4. LOMOTIL [Concomitant]
     Route: 048
     Dates: start: 20110113
  5. LEVAQUIN [Concomitant]
     Indication: PROPHYLAXIS
     Dosage: 500MG PER DAY
     Route: 048
     Dates: start: 20101221
  6. ATIVAN [Concomitant]
     Indication: ANXIETY
     Dosage: .5MG SIX TIMES PER DAY
     Route: 048
     Dates: start: 20110105
  7. DOCETAXEL [Suspect]
     Indication: BREAST CANCER
     Dosage: 75MGM2 WEEKLY
     Route: 042
     Dates: start: 20101230
  8. CARBOPLATIN [Suspect]
     Indication: BREAST CANCER
     Route: 042
     Dates: start: 20101230

REACTIONS (1)
  - INFECTION [None]
